FAERS Safety Report 7880221-6 (Version None)
Quarter: 2011Q4

REPORT INFORMATION
  Report Type: 
  Country: None (occurrence: None)
  Receive Date: 20111101
  Receipt Date: 20111031
  Transmission Date: 20120403
  Serious: Yes (Other)
  Sender: FDA-Public Use
  Company Number: US-ABBOTT-11P-163-0864257-00

PATIENT
  Sex: Female

DRUGS (16)
  1. LEVOTHYROXINE SODIUM [Concomitant]
     Indication: THYROID DISORDER
  2. TRILIPIX DR [Concomitant]
     Indication: BLOOD CHOLESTEROL
  3. METFORMIN HCL [Concomitant]
     Indication: DIABETES MELLITUS
  4. ASPIRIN [Concomitant]
     Indication: PRODUCT USED FOR UNKNOWN INDICATION
  5. TRILIPIX DR [Concomitant]
     Indication: BLOOD CHOLESTEROL INCREASED
  6. VITAMIN D [Concomitant]
     Indication: VITAMIN SUPPLEMENTATION
  7. OXYCODONE HCL [Concomitant]
     Indication: PAIN
     Dosage: 10/325 MG 4 TIMES DAILY AS REQUIRED
  8. ZANTAC [Concomitant]
     Indication: GASTROOESOPHAGEAL REFLUX DISEASE
  9. BENICAR [Concomitant]
     Indication: HYPERTENSION
     Dosage: 20-12.5MG ONCE DAILY
  10. XANAX [Concomitant]
     Indication: ANXIETY
     Dosage: 4 TIMES DAILY AS REQUIRED
  11. HUMIRA [Suspect]
     Indication: PSORIASIS
     Route: 058
     Dates: start: 20080101
  12. ZANTAC [Concomitant]
  13. FLEXERIL [Concomitant]
     Indication: MUSCLE SPASMS
     Dosage: AT BEDTIME
  14. PLAVIX [Concomitant]
     Indication: ANTIPLATELET THERAPY
  15. FISH OIL [Concomitant]
     Indication: VITAMIN SUPPLEMENTATION
  16. PROPRANOLOL [Concomitant]
     Indication: HYPERTENSION

REACTIONS (3)
  - INJECTION SITE HAEMORRHAGE [None]
  - INJECTION SITE NODULE [None]
  - GALLBLADDER DISORDER [None]
